FAERS Safety Report 8056386-2 (Version None)
Quarter: 2012Q1

REPORT INFORMATION
  Report Type: 
  Country: None (occurrence: None)
  Receive Date: 20120119
  Receipt Date: 20120116
  Transmission Date: 20120608
  Serious: Yes (Hospitalization, Other)
  Sender: FDA-Public Use
  Company Number: BR-PFIZER INC-2009250468

PATIENT
  Age: 85 Year
  Sex: Female

DRUGS (9)
  1. PANTOPRAZOLE [Concomitant]
     Dosage: 20 MG, UNK
     Dates: start: 20090201
  2. ALDACTONE [Concomitant]
     Dosage: UNK
     Dates: start: 20090201
  3. ISOSORBIDE MONONITRATE [Concomitant]
     Dosage: UNK
     Dates: start: 20090201
  4. CARVEDILOL [Concomitant]
     Dosage: UNK
     Dates: start: 20090201
  5. MAGNESIUM HYDROXIDE [Concomitant]
     Indication: CONSTIPATION
     Dosage: UNK
     Dates: start: 20090201
  6. LIPITOR [Suspect]
     Indication: BLOOD CHOLESTEROL INCREASED
     Dosage: 20 MG, 1X/DAY
     Route: 048
     Dates: start: 20071213
  7. SOMALGIN [Concomitant]
     Dosage: UNK
     Dates: start: 19940101
  8. PLAVIX [Concomitant]
     Dosage: UNK
     Dates: start: 20090201
  9. LEXOTAN [Concomitant]
     Dosage: 3 MG, UNK
     Dates: start: 20090201

REACTIONS (6)
  - ANGINA PECTORIS [None]
  - PULMONARY OEDEMA [None]
  - OESOPHAGEAL PAIN [None]
  - MALAISE [None]
  - DYSPNOEA [None]
  - PRURITUS [None]
